FAERS Safety Report 5323885-3 (Version None)
Quarter: 2007Q2

REPORT INFORMATION
  Report Type: 
  Country: None (occurrence: None)
  Receive Date: 20070510
  Receipt Date: 20070510
  Transmission Date: 20071010
  Serious: Yes (Hospitalization)
  Sender: FDA-Public Use
  Company Number: None

PATIENT
  Age: 45 Year
  Sex: Female
  Weight: 72.5755 kg

DRUGS (2)
  1. PROAIR HFA [Suspect]
     Indication: ASTHMA
     Dosage: 1-2 PUFFS AS NEEDED
     Dates: start: 20070416, end: 20070416
  2. VENTOLIN HFA [Suspect]
     Indication: ASTHMA
     Dosage: 1-2 PUFFS  AS NEEDED
     Dates: start: 20070419, end: 20070419

REACTIONS (7)
  - ASTHMA [None]
  - CHEST DISCOMFORT [None]
  - CHEST PAIN [None]
  - COUGH [None]
  - DRUG INEFFECTIVE [None]
  - FEELING ABNORMAL [None]
  - RESPIRATORY TRACT IRRITATION [None]
